FAERS Safety Report 24447041 (Version 1)
Quarter: 2024Q4

REPORT INFORMATION
  Report Type: Spontaneous
  Country: SE (occurrence: SE)
  Receive Date: 20241016
  Receipt Date: 20241016
  Transmission Date: 20250115
  Serious: Yes (Death, Other)
  Sender: SHIONOGI
  Company Number: SE-shionogi-202400001153

PATIENT
  Age: 35 Year
  Sex: Female

DRUGS (1)
  1. CEFIDEROCOL SULFATE TOSYLATE [Suspect]
     Active Substance: CEFIDEROCOL SULFATE TOSYLATE
     Indication: Product used for unknown indication

REACTIONS (1)
  - Multiple organ dysfunction syndrome [Fatal]
